FAERS Safety Report 10705370 (Version 11)
Quarter: 2015Q3

REPORT INFORMATION
  Report Type: Report from Study
  Country: JP (occurrence: JP)
  Receive Date: 20150112
  Receipt Date: 20150908
  Transmission Date: 20151125
  Serious: Yes (Hospitalization, Other)
  Sender: FDA-Public Use
  Company Number: JP-CELGENE-JPN-2015010487

PATIENT
  Age: 67 Year
  Sex: Male
  Weight: 57.1 kg

DRUGS (53)
  1. SENNOSIDE A B CALCIUM [Concomitant]
     Indication: ENDOSCOPY LARGE BOWEL
     Dosage: 1 PERCENT
     Route: 048
     Dates: start: 20141218, end: 20141218
  2. SCOPOLAMINE BUTYLBROMIDE [Concomitant]
     Active Substance: SCOPOLAMINE
     Indication: ENEMA ADMINISTRATION
     Route: 041
     Dates: start: 20150305, end: 20150305
  3. LIDOCAINE. [Concomitant]
     Active Substance: LIDOCAINE
     Indication: ENDOSCOPY LARGE BOWEL
     Route: 061
     Dates: start: 20141219, end: 20141219
  4. FLURBIPROFEN AXETIL [Concomitant]
     Active Substance: FLURBIPROFEN AXETIL
     Indication: PROCEDURAL PAIN
     Route: 041
     Dates: start: 20150310, end: 20150310
  5. SOLACET F [Concomitant]
     Indication: NUTRITIONAL SUPPLEMENTATION
     Dosage: 64.71 GRAM
     Route: 041
     Dates: start: 20150309, end: 20150309
  6. SOLACET F [Concomitant]
     Route: 041
     Dates: start: 20150310, end: 20150310
  7. SOLDEM 3A [Concomitant]
     Active Substance: CARBOHYDRATES\POTASSIUM CHLORIDE\SODIUM CHLORIDE\SODIUM LACTATE
     Indication: NUTRITIONAL SUPPLEMENTATION
     Dosage: .6 PERCENT
     Route: 041
     Dates: start: 20150309, end: 20150309
  8. IOPAMIDOL [Concomitant]
     Active Substance: IOPAMIDOL
     Dosage: 1 GRAM
     Route: 041
     Dates: start: 20150327, end: 20150327
  9. SODIUM PICOSULFATE HYDRATE [Concomitant]
     Indication: SURGERY
  10. SOLACET D [Concomitant]
     Route: 041
     Dates: start: 20150321
  11. CARBAZOCHROME SODIUM SULFONATE HYDRATE [Concomitant]
     Indication: PRODUCT USED FOR UNKNOWN INDICATION
     Route: 041
     Dates: start: 20150312, end: 20150314
  12. GLUACETO 35 [Concomitant]
     Indication: NUTRITIONAL SUPPLEMENTATION
     Dosage: 50 MILLIGRAM
     Route: 041
     Dates: start: 20150307, end: 20150308
  13. ASCORBIC ACID. [Concomitant]
     Active Substance: ASCORBIC ACID
     Indication: NUTRITIONAL SUPPLEMENTATION
     Route: 041
     Dates: start: 20150307, end: 20150308
  14. ROPIVACAINE HYDROCHLORIDE. [Concomitant]
     Active Substance: ROPIVACAINE HYDROCHLORIDE
     Indication: PRODUCT USED FOR UNKNOWN INDICATION
     Dosage: 80 MILLIGRAM
     Route: 065
     Dates: start: 20150309, end: 20150309
  15. IOPAMIDOL [Concomitant]
     Active Substance: IOPAMIDOL
     Route: 041
     Dates: start: 20150318, end: 20150318
  16. PROPOFOL. [Concomitant]
     Active Substance: PROPOFOL
     Indication: EPIDURAL ANAESTHESIA
     Dosage: 1000 MILLILITER
     Route: 041
     Dates: start: 20150309, end: 20150309
  17. RABEPRAZOLE SODIUM. [Concomitant]
     Active Substance: RABEPRAZOLE SODIUM
     Indication: GASTRIC ULCER
     Route: 048
     Dates: start: 20141006, end: 20150225
  18. SODIUM CHLORIDE/POTASSIUM CHLORIDE/SODIUM BICARBONATE/ANHYDROUS SODIUM [Concomitant]
     Indication: ENDOSCOPY LARGE BOWEL
     Dosage: 2.93/1.485/3.37/11.37G
     Route: 048
     Dates: start: 20141219, end: 20141219
  19. ECABET SODIUM HYDRATE [Concomitant]
     Indication: GASTRIC ULCER
     Route: 048
     Dates: start: 20141219, end: 20150225
  20. HUMAN INSULIN [Concomitant]
     Active Substance: INSULIN HUMAN
     Indication: PRODUCT USED FOR UNKNOWN INDICATION
     Dosage: 2-8
     Route: 058
     Dates: start: 20150310
  21. SOLDEM 3A [Concomitant]
     Active Substance: CARBOHYDRATES\POTASSIUM CHLORIDE\SODIUM CHLORIDE\SODIUM LACTATE
     Route: 041
     Dates: start: 20150331
  22. AMIDOTRIZOIC ACID [Concomitant]
     Indication: ENEMA ADMINISTRATION
     Route: 065
     Dates: start: 20150305, end: 20150305
  23. ASCORBIC ACID. [Concomitant]
     Active Substance: ASCORBIC ACID
     Dosage: 1.6 MILLIGRAM
     Route: 041
     Dates: start: 20150310, end: 20150320
  24. FENTANYL CITRATE. [Concomitant]
     Active Substance: FENTANYL CITRATE
     Indication: EPIDURAL ANAESTHESIA
     Dosage: 34 GRAM
     Route: 065
     Dates: start: 20150309, end: 20150309
  25. SOLACET D [Concomitant]
     Indication: NUTRITIONAL SUPPLEMENTATION
     Route: 041
     Dates: start: 20150310, end: 20150320
  26. SODIUM FERROUS CITRATE [Concomitant]
     Active Substance: SODIUM FERROUS CITRATE
     Indication: ANAEMIA
     Dosage: 60 MILLILITER
     Route: 048
     Dates: start: 20141016, end: 20141201
  27. SCOPOLAMINE BUTYLBROMIDE [Concomitant]
     Active Substance: SCOPOLAMINE
     Indication: ENDOSCOPY LARGE BOWEL
     Route: 041
     Dates: start: 20141219, end: 20141219
  28. HEPARINOID [Concomitant]
     Active Substance: CHONDROITIN SULFATE (BOVINE)
     Indication: PSORIASIS
     Route: 061
     Dates: start: 20150109, end: 20150114
  29. CEFMETAZOLE SODIUM [Concomitant]
     Active Substance: CEFMETAZOLE SODIUM
     Indication: INFECTION PROPHYLAXIS
     Dosage: 400 MILLILITER
     Route: 041
     Dates: start: 20150309, end: 20150320
  30. TRANEXAMIC ACID. [Concomitant]
     Active Substance: TRANEXAMIC ACID
     Indication: PRODUCT USED FOR UNKNOWN INDICATION
     Dosage: 100 MILLIGRAM
     Route: 041
     Dates: start: 20150312, end: 20150314
  31. CC-10004 [Suspect]
     Active Substance: APREMILAST
     Indication: PSORIASIS
     Route: 048
     Dates: start: 20140709, end: 20141219
  32. MAGNESIUM OXIDE. [Concomitant]
     Active Substance: MAGNESIUM OXIDE
     Indication: CONSTIPATION
     Route: 048
     Dates: start: 20141001, end: 20141225
  33. SODIUM ALGINATE [Concomitant]
     Active Substance: SODIUM ALGINATE
     Indication: GASTRIC ULCER
     Dosage: 10 MILLIGRAM
     Route: 048
     Dates: start: 20141007, end: 20141218
  34. METOCLOPRAMIDE. [Concomitant]
     Active Substance: METOCLOPRAMIDE
     Indication: NAUSEA
     Dosage: 36 MILLIGRAM
     Route: 048
     Dates: start: 20141219, end: 20141219
  35. IOHEXOL [Concomitant]
     Active Substance: IOHEXOL
     Indication: COMPUTERISED TOMOGRAM
     Route: 041
     Dates: start: 20150109, end: 20150109
  36. MAGNESIUM CITRATE. [Concomitant]
     Active Substance: MAGNESIUM CITRATE
     Indication: ENEMA ADMINISTRATION
     Route: 048
     Dates: start: 20150305, end: 20150305
  37. SODIUM PICOSULFATE HYDRATE [Concomitant]
     Indication: ENEMA ADMINISTRATION
     Route: 048
     Dates: start: 20150308, end: 20150308
  38. VITAMEDIN [Concomitant]
     Active Substance: CYANOCOBALAMIN\PYRIDOXINE HYDROCHLORIDE\THIAMINE
     Indication: NUTRITIONAL SUPPLEMENTATION
     Dosage: 107.13/100/1 MG
     Route: 041
     Dates: start: 20150307, end: 20150308
  39. REMIFENTANIL HYDROCHLORIDE [Concomitant]
     Active Substance: REMIFENTANIL HYDROCHLORIDE
     Indication: EPIDURAL ANAESTHESIA
     Route: 041
     Dates: start: 20150309, end: 20150309
  40. DESFLURANE. [Concomitant]
     Active Substance: DESFLURANE
     Indication: EPIDURAL ANAESTHESIA
     Dosage: 150 MILLIGRAM
     Route: 055
     Dates: start: 20150309, end: 20150309
  41. PHENYLEPHRINE HYDROCHLORIDE. [Concomitant]
     Active Substance: PHENYLEPHRINE HYDROCHLORIDE
     Indication: PRODUCT USED FOR UNKNOWN INDICATION
     Dosage: 2 GRAM
     Route: 041
     Dates: start: 20150309, end: 20150309
  42. WHITE PETROLATUM [Concomitant]
     Active Substance: PETROLATUM
     Indication: PSORIASIS
     Dosage: 1 ADEQUATE
     Route: 061
     Dates: start: 20140210, end: 20150304
  43. METOCLOPRAMIDE. [Concomitant]
     Active Substance: METOCLOPRAMIDE
     Route: 048
     Dates: start: 20150611
  44. IOPAMIDOL [Concomitant]
     Active Substance: IOPAMIDOL
     Indication: PRODUCT USED FOR UNKNOWN INDICATION
     Route: 041
     Dates: start: 20150304, end: 20150304
  45. FENTANYL CITRATE. [Concomitant]
     Active Substance: FENTANYL CITRATE
     Route: 065
     Dates: start: 20150310, end: 20150312
  46. EPHEDRINE HYDROCHLORIDE [Concomitant]
     Active Substance: EPHEDRINE HYDROCHLORIDE
     Indication: PRODUCT USED FOR UNKNOWN INDICATION
     Route: 041
     Dates: start: 20150309, end: 20150309
  47. DROPERIDOL. [Concomitant]
     Active Substance: DROPERIDOL
     Indication: EPIDURAL ANAESTHESIA
     Dosage: 2 MILLIGRAM
     Route: 065
     Dates: start: 20150309, end: 20150312
  48. LIDOCAINE HYDROCHLORIDE MONOHYDRATE [Concomitant]
     Indication: PRODUCT USED FOR UNKNOWN INDICATION
     Dosage: 20 MILLIGRAM
     Route: 065
     Dates: start: 20150309, end: 20150312
  49. MAGNESIUM OXIDE. [Concomitant]
     Active Substance: MAGNESIUM OXIDE
     Route: 048
     Dates: start: 20141111, end: 20141225
  50. PREDNISOLONE. [Concomitant]
     Active Substance: PREDNISOLONE
     Indication: PSORIASIS
     Dosage: 200 MILLIGRAM
     Route: 061
     Dates: start: 20141126, end: 20150114
  51. ROCURONIUM BROMIDE. [Concomitant]
     Active Substance: ROCURONIUM BROMIDE
     Indication: PRODUCT USED FOR UNKNOWN INDICATION
     Route: 041
     Dates: start: 20150309, end: 20150309
  52. ROPIVACAINE HYDROCHLORIDE. [Concomitant]
     Active Substance: ROPIVACAINE HYDROCHLORIDE
     Route: 065
     Dates: start: 20150310, end: 20150312
  53. INDAST [Concomitant]
     Indication: INFECTION PROPHYLAXIS
     Dosage: 2 GRAM
     Route: 041
     Dates: start: 20150327

REACTIONS (3)
  - Colon cancer metastatic [Recovering/Resolving]
  - Adenocarcinoma of colon [Recovering/Resolving]
  - Pneumothorax [Recovered/Resolved]

NARRATIVE: CASE EVENT DATE: 20141219
